FAERS Safety Report 8237936-X (Version None)
Quarter: 2012Q1

REPORT INFORMATION
  Report Type: 
  Country: None (occurrence: None)
  Receive Date: 20120327
  Receipt Date: 20120316
  Transmission Date: 20120608
  Serious: Yes (Hospitalization, Other)
  Sender: FDA-Public Use
  Company Number: US-MUTUAL PHARMACEUTICAL COMPANY, INC.-SFTM20120013

PATIENT
  Sex: Male

DRUGS (9)
  1. NOVOLOG [Suspect]
     Route: 065
  2. DOXYCYCLINE [Suspect]
     Route: 065
     Dates: start: 20110606, end: 20110706
  3. ASPIRIN [Concomitant]
     Route: 065
     Dates: start: 20100730
  4. SULFAMETHOXAZOLE AND TRIMETHOPRIM [Suspect]
     Route: 065
     Dates: start: 20110606, end: 20110706
  5. PLACEBO [Suspect]
     Route: 065
     Dates: start: 20100806
  6. EZETIMIBE [Concomitant]
     Route: 065
     Dates: start: 20100730
  7. SAXAGLIPTIN [Suspect]
     Route: 065
     Dates: start: 20100806
  8. AVANDIA [Suspect]
     Route: 065
  9. INSULIN HUMAN (HUMALIN) [Suspect]
     Route: 065

REACTIONS (6)
  - RENAL FAILURE [None]
  - BLOOD POTASSIUM INCREASED [None]
  - DEHYDRATION [None]
  - VOMITING [None]
  - BLOOD SODIUM DECREASED [None]
  - OFF LABEL USE [None]
